FAERS Safety Report 24600703 (Version 5)
Quarter: 2025Q2

REPORT INFORMATION
  Report Type: Spontaneous
  Country: US (occurrence: US)
  Receive Date: 20241110
  Receipt Date: 20250521
  Transmission Date: 20250716
  Serious: No
  Sender: SANOFI AVENTIS
  Company Number: US-SA-2024SA318923

PATIENT
  Age: 27 Year
  Sex: Female

DRUGS (3)
  1. DUPIXENT [Suspect]
     Active Substance: DUPILUMAB
     Indication: Idiopathic urticaria
     Dosage: 300 MG, QOW
     Route: 058
  2. DUPIXENT [Suspect]
     Active Substance: DUPILUMAB
     Dosage: 300 MG, QW
     Route: 058
  3. MIDODRINE [Suspect]
     Active Substance: MIDODRINE
     Indication: Dizziness

REACTIONS (5)
  - Dizziness [Unknown]
  - Chills [Unknown]
  - Arthralgia [Unknown]
  - Off label use [Unknown]
  - Extra dose administered [Unknown]
